FAERS Safety Report 5259313-6 (Version None)
Quarter: 2007Q1

REPORT INFORMATION
  Report Type: 
  Country: None (occurrence: None)
  Receive Date: 20070305
  Receipt Date: 20070220
  Transmission Date: 20070707
  Serious: Yes (Disabling)
  Sender: FDA-Public Use
  Company Number: OSCN-NO-0608L-0242

PATIENT
  Age: 56 Year
  Sex: Male

DRUGS (11)
  1. OMNISCAN [Suspect]
     Indication: DRUG USE FOR UNKNOWN INDICATION
     Dosage: UNKNOWN, SINGLE DOSE, UNK
  2. HEPARIN-FRACTION, SODIUM SALT (ENOXAPARIN SODIUM) [Concomitant]
  3. AMIODARONE HCL [Concomitant]
  4. CALCIUM CARBONATE [Concomitant]
  5. ERYTHROPOIETIN (ERYTHROPOIETIN ALFA) [Concomitant]
  6. CACITRIOL [Concomitant]
  7. OMEPRAZOLE [Concomitant]
  8. BISOPROLOL [Concomitant]
  9. UNSPECIFIED CORTICOSTEROIDS [Concomitant]
  10. MYCOPHENOLATE MOFETIL [Concomitant]
  11. TACROLIMUS [Concomitant]

REACTIONS (1)
  - NEPHROGENIC FIBROSING DERMOPATHY [None]
